FAERS Safety Report 11636433 (Version 1)
Quarter: 2015Q4

REPORT INFORMATION
  Report Type: Spontaneous
  Country: US (occurrence: US)
  Receive Date: 20151016
  Receipt Date: 20151016
  Transmission Date: 20160304
  Serious: Yes (Other)
  Sender: FDA-Public Use
  Company Number: US-ELI_LILLY_AND_COMPANY-US201510002522

PATIENT
  Sex: Male

DRUGS (14)
  1. VOTRIENT [Suspect]
     Active Substance: PAZOPANIB HYDROCHLORIDE
     Indication: RENAL CELL CARCINOMA
     Dosage: UNK
     Route: 065
     Dates: start: 1999
  2. ADVAIR HFA [Concomitant]
     Active Substance: FLUTICASONE PROPIONATE\SALMETEROL XINAFOATE
  3. FELODIPINE. [Concomitant]
     Active Substance: FELODIPINE
  4. CALCIUM [Concomitant]
     Active Substance: CALCIUM
  5. HUMALOG [Suspect]
     Active Substance: INSULIN LISPRO
     Indication: TYPE 1 DIABETES MELLITUS
     Dosage: UNK, PRN
     Route: 065
  6. SINGULAIR [Concomitant]
     Active Substance: MONTELUKAST SODIUM
  7. ALBUTEROL                          /00139501/ [Concomitant]
     Active Substance: ALBUTEROL
  8. LEVEMIR [Concomitant]
     Active Substance: INSULIN DETEMIR
  9. ATIVAN [Concomitant]
     Active Substance: LORAZEPAM
  10. AVODART [Concomitant]
     Active Substance: DUTASTERIDE
  11. ZETIA [Concomitant]
     Active Substance: EZETIMIBE
  12. FUROSEMIDE. [Concomitant]
     Active Substance: FUROSEMIDE
  13. HYTRIN [Concomitant]
     Active Substance: TERAZOSIN HYDROCHLORIDE
  14. VITAMIN D                          /00107901/ [Concomitant]
     Active Substance: ERGOCALCIFEROL

REACTIONS (2)
  - Blood glucose increased [Unknown]
  - Renal cell carcinoma [Not Recovered/Not Resolved]

NARRATIVE: CASE EVENT DATE: 1999
